FAERS Safety Report 12454619 (Version 2)
Quarter: 2018Q2

REPORT INFORMATION
  Report Type: Report from Study
  Country: DE (occurrence: DE)
  Receive Date: 20160610
  Receipt Date: 20180622
  Transmission Date: 20180711
  Serious: Yes (Other)
  Sender: FDA-Public Use
  Company Number: DE-ROCHE-1768858

PATIENT
  Age: 52 Year
  Sex: Female
  Weight: 82 kg

DRUGS (8)
  1. VINORELBINE [Concomitant]
     Active Substance: VINORELBINE\VINORELBINE TARTRATE
     Indication: BREAST CANCER
     Dosage: 53.4-56.4 MG
     Route: 065
     Dates: start: 20120704, end: 20130725
  2. CODEIN [Concomitant]
     Active Substance: CODEINE
     Indication: COUGH
     Route: 065
     Dates: start: 201306, end: 20131116
  3. ACETYLCYSTEINE. [Concomitant]
     Active Substance: ACETYLCYSTEINE
     Indication: COUGH
     Route: 065
     Dates: start: 20130704, end: 20131116
  4. ACETYLCYSTEINE. [Concomitant]
     Active Substance: ACETYLCYSTEINE
     Indication: BRONCHITIS
     Route: 065
     Dates: start: 20130325, end: 20130328
  5. CODEIN [Concomitant]
     Active Substance: CODEINE
     Indication: BRONCHITIS
     Route: 065
     Dates: start: 20130325, end: 20130328
  6. TRASTUZUMAB. [Suspect]
     Active Substance: TRASTUZUMAB
     Indication: HER-2 POSITIVE BREAST CANCER
     Dosage: 480-492 MG
     Route: 042
     Dates: start: 20120704, end: 20130725
  7. CEFUROXIM [Concomitant]
     Active Substance: CEFUROXIME
     Indication: BRONCHITIS
     Route: 042
     Dates: start: 20130325, end: 20130331
  8. CEFUROXIM [Concomitant]
     Active Substance: CEFUROXIME
     Route: 048
     Dates: start: 20130329, end: 20130331

REACTIONS (14)
  - Diarrhoea [Recovered/Resolved]
  - Laryngitis [Recovered/Resolved]
  - Headache [Recovered/Resolved]
  - Upper respiratory tract infection [Recovered/Resolved]
  - Pollakiuria [Recovered/Resolved]
  - Anaemia [Recovered/Resolved]
  - Rash [Recovered/Resolved]
  - Cough [Recovered/Resolved]
  - Erythema [Recovered/Resolved]
  - Bone pain [Recovered/Resolved]
  - Blindness [Recovered/Resolved]
  - Sleep disorder [Recovered/Resolved]
  - Weight decreased [Recovered/Resolved]
  - Lymphoedema [Recovered/Resolved]

NARRATIVE: CASE EVENT DATE: 20120725
